FAERS Safety Report 8005762-2 (Version None)
Quarter: 2011Q4

REPORT INFORMATION
  Report Type: 
  Country: None (occurrence: None)
  Receive Date: 20111223
  Receipt Date: 20111213
  Transmission Date: 20120403
  Serious: Yes (Hospitalization, Other)
  Sender: FDA-Public Use
  Company Number: PHHY2011NL89254

PATIENT
  Age: 49 Year
  Sex: Male

DRUGS (24)
  1. METOPROLOL SUCCINATE [Suspect]
     Dosage: 200 MG, QD
  2. SIMVASTATIN [Concomitant]
     Dosage: 40 MG, QD
  3. RISPERIDONE [Concomitant]
     Dosage: UNK
     Dates: start: 20080801
  4. CLOZAPINE [Suspect]
     Indication: SCHIZOPHRENIA, PARANOID TYPE
     Dosage: 325 MG, QD
     Dates: start: 19990101
  5. CLOZAPINE [Suspect]
     Dosage: 500 MG, QD
  6. METOPROLOL SUCCINATE [Suspect]
     Dosage: 500 MG, DAILY
  7. ENALAPRIL MALEATE [Concomitant]
     Dates: start: 20080801
  8. ENALAPRIL MALEATE [Concomitant]
     Dosage: 10 MG, QD
  9. HALOPERIDOL [Concomitant]
  10. AMLODIPINE [Concomitant]
     Dosage: 5 MG, QD
  11. DIPYRIDAMOLE [Concomitant]
     Dosage: 200 MG, QD
  12. QUETIAPINE [Concomitant]
     Dosage: 75 MG, QD
  13. QUETIAPINE [Concomitant]
     Dosage: 600 MG, DAILY
  14. QUETIAPINE [Concomitant]
     Dosage: UNK
     Dates: start: 20080901
  15. HYDROCHLOROTHIAZIDE [Suspect]
     Dosage: UNK UKN, UNK
  16. CARBASALATE CALCIUM [Concomitant]
     Dosage: 100 MG, QD
  17. ESOMEPRAZOLE [Concomitant]
     Dosage: 40 MG, QD
  18. OXAZEPAM [Concomitant]
     Dosage: 20 MG, QD
  19. CLOZAPINE [Suspect]
     Dosage: 250 MG, QD
  20. METOPROLOL SUCCINATE [Suspect]
     Dosage: 100 MG, QD
  21. ANTIHISTAMINICS [Concomitant]
  22. BARNIDIPINE [Concomitant]
  23. METOPROLOL SUCCINATE [Suspect]
     Indication: HYPERTENSION
     Dosage: 50 MG, QD
  24. TEMAZEPAM [Concomitant]
     Dosage: 10 MG, QD

REACTIONS (13)
  - ANGIOEDEMA [None]
  - PERIORBITAL OEDEMA [None]
  - HYPERTENSIVE CRISIS [None]
  - EYELID OEDEMA [None]
  - GLOMERULAR FILTRATION RATE DECREASED [None]
  - HYPERTENSION [None]
  - LACUNAR INFARCTION [None]
  - RENAL FAILURE [None]
  - HEMIPARESIS [None]
  - LEFT VENTRICULAR HYPERTROPHY [None]
  - TACHYCARDIA [None]
  - HYPERSENSITIVITY [None]
  - DRUG INEFFECTIVE [None]
